FAERS Safety Report 9637508 (Version 1)
Quarter: 2013Q4

REPORT INFORMATION
  Report Type: Spontaneous
  Country: US (occurrence: None)
  Receive Date: 20131018
  Receipt Date: 20131018
  Transmission Date: 20140711
  Serious: Yes (Other)
  Sender: FDA-Public Use
  Company Number: ACO_38895_2013

PATIENT
  Age: 64 Year
  Sex: Female
  Weight: 86.2 kg

DRUGS (3)
  1. AMPYRA [Suspect]
     Indication: GAIT DISTURBANCE
     Route: 048
     Dates: start: 20130923, end: 20131002
  2. MULTIVITAMINS (ASCORBIC ACID, ERGOCALCIFEROL, FOLIC ACID, NICOTINAMIDE, PANTHENOL, RETINOL, RIBOFLAVIN, THIAMINE HYDROCHLORIDE) [Concomitant]
  3. ALEVE (NAPROXEN SODIUM) [Concomitant]

REACTIONS (9)
  - Drug ineffective [None]
  - Dysstasia [None]
  - Sciatica [None]
  - Muscular weakness [None]
  - Erythema [None]
  - Facial pain [None]
  - Insomnia [None]
  - Dizziness [None]
  - Drug dose omission [None]
